FAERS Safety Report 4302217-3 (Version None)
Quarter: 2004Q1

REPORT INFORMATION
  Report Type: 
  Country: None (occurrence: None)
  Receive Date: 20040220
  Receipt Date: 20040204
  Transmission Date: 20041129
  Serious: Yes (Hospitalization)
  Sender: FDA-Public Use
  Company Number: UK065624

PATIENT
  Age: 86 Year
  Sex: Male

DRUGS (7)
  1. ARANESP [Suspect]
     Indication: RENAL FAILURE CHRONIC
     Dates: start: 20030701
  2. FLUINDIONE [Concomitant]
  3. FUROSEMIDE [Concomitant]
  4. PERINDOPRIL [Concomitant]
  5. SPIRONOLACTONE [Concomitant]
  6. LORAZEPAM [Concomitant]
  7. DIGOXIN [Concomitant]

REACTIONS (5)
  - ABDOMINAL PAIN LOWER [None]
  - ACUTE GENERALISED EXANTHEMATOUS PUSTULOSIS [None]
  - ECZEMA [None]
  - STAPHYLOCOCCAL SEPSIS [None]
  - TOXIC SKIN ERUPTION [None]
